FAERS Safety Report 4713093-9 (Version None)
Quarter: 2005Q3

REPORT INFORMATION
  Report Type: 
  Country: None (occurrence: None)
  Receive Date: 20050708
  Receipt Date: 20050705
  Transmission Date: 20060218
  Serious: Yes (Death, Hospitalization)
  Sender: FDA-Public Use
  Company Number: FRWYE635102MAY05

PATIENT
  Age: 65 Year
  Sex: Male

DRUGS (14)
  1. TAZOCILLINE (PIPERACILLIN/ TAZOBACTAM, INJECTION) [Suspect]
     Indication: SEPSIS
     Dosage: SEE IMAGE
     Route: 042
     Dates: start: 20050331, end: 20050331
  2. TAZOCILLINE (PIPERACILLIN/ TAZOBACTAM, INJECTION) [Suspect]
     Indication: SEPSIS
     Dosage: SEE IMAGE
     Route: 042
     Dates: start: 20050401, end: 20050401
  3. TAZOCILLINE (PIPERACILLIN/ TAZOBACTAM, INJECTION) [Suspect]
     Indication: SEPSIS
     Dosage: SEE IMAGE
     Route: 042
     Dates: start: 20050402, end: 20050404
  4. AMIKACIN [Suspect]
     Dosage: SEE IMAGE
     Route: 042
     Dates: start: 20050331, end: 20050404
  5. CALCIDIA (CALCIUM CARBONATE, , 0) [Suspect]
     Dosage: ORAL
     Route: 048
  6. CALCIPARINE (HEPARIN CALCIUM, , 0) [Suspect]
  7. VALPROATE SODIUM [Suspect]
     Indication: GRAND MAL CONVULSION
     Dosage: 1400 MG 1 X PER 1 DAY, ORAL
     Route: 048
     Dates: start: 20050404, end: 20050417
  8. FUROSEMIDE [Suspect]
  9. NEORECORMON (EPOETIN BETA, , 0) [Suspect]
     Dosage: 10000 IU 1X PER 1 DAY, SC
     Route: 058
  10. PERFALGAN (PARACETAMOL, , 0) [Suspect]
     Dosage: 1 G 1X PER 1 DAY
  11. FOLIC ACID [Suspect]
     Dosage: ORAL
     Route: 048
  12. FERROUS SULFATE TAB [Suspect]
     Dosage: ORAL
     Route: 048
  13. TRAMADOL HYDROCLORIDE [Suspect]
     Dosage: ORAL
     Route: 048
     Dates: end: 20050404
  14. FLUCONAZOLE [Suspect]
     Dosage: 200 MG 2X PER  1 DAY, ORAL
     Route: 048
     Dates: start: 20050331, end: 20050407

REACTIONS (6)
  - ANTIBIOTIC LEVEL ABOVE THERAPEUTIC [None]
  - BLOOD ALKALINE PHOSPHATASE INCREASED [None]
  - COOMBS POSITIVE HAEMOLYTIC ANAEMIA [None]
  - GAMMA-GLUTAMYLTRANSFERASE INCREASED [None]
  - GRAND MAL CONVULSION [None]
  - NORMOCHROMIC NORMOCYTIC ANAEMIA [None]
